FAERS Safety Report 8283060-X (Version None)
Quarter: 2012Q1

REPORT INFORMATION
  Report Type: 
  Country: None (occurrence: None)
  Receive Date: 20120327
  Receipt Date: 20120312
  Transmission Date: 20120608
  Serious: Yes (Death, Hospitalization)
  Sender: FDA-Public Use
  Company Number: 2012PROUSA01074

PATIENT
  Age: 65 Year
  Sex: Male
  Weight: 56.3 kg

DRUGS (14)
  1. OXYBUTYNIN (OXYBYTYNIN) [Concomitant]
  2. PREDELTIN (PREDNISONE) [Concomitant]
  3. ABIRATERONE (ABIRATERONE) [Concomitant]
  4. FLUOXETINE [Concomitant]
  5. MORPHINE SULFATE INJ [Concomitant]
  6. DEXAMETHASONE [Concomitant]
  7. POTASSIUM CHLORIDE [Concomitant]
  8. PROCHLORPERAZINE MALEATE (PROCHLORPERAZINE MALEATE) [Concomitant]
  9. ZOFRAN /00955301/ (ONDANSETRON) [Concomitant]
  10. OMEPRAZOLE (OMERPAZOLE) [Concomitant]
  11. LEVOTHYROXINE SODIUM [Concomitant]
  12. PROVENGE [Suspect]
     Indication: PROSTATE CANCER METASTATIC
     Dosage: 250 ML, SINGLE, INTRAVENOUS; 250 ML, SINGLE, INTRAVENOUS
     Route: 042
     Dates: start: 20120119, end: 20120119
  13. PROVENGE [Suspect]
     Indication: PROSTATE CANCER METASTATIC
     Dosage: 250 ML, SINGLE, INTRAVENOUS; 250 ML, SINGLE, INTRAVENOUS
     Route: 042
     Dates: start: 20120202, end: 20120202
  14. FOLIC ACID [Concomitant]

REACTIONS (11)
  - SKULL FRACTURE [None]
  - FALL [None]
  - ENCEPHALOPATHY [None]
  - SUBDURAL HAEMATOMA [None]
  - HAEMORRHAGE INTRACRANIAL [None]
  - DIZZINESS [None]
  - CRANIOCEREBRAL INJURY [None]
  - SYNCOPE [None]
  - SUBARACHNOID HAEMORRHAGE [None]
  - LOSS OF CONSCIOUSNESS [None]
  - RESPIRATORY FAILURE [None]
